FAERS Safety Report 20810039 (Version 1)
Quarter: 2022Q2

REPORT INFORMATION
  Report Type: Spontaneous
  Country: US (occurrence: US)
  Receive Date: 20220510
  Receipt Date: 20220510
  Transmission Date: 20220721
  Serious: Yes (Other)
  Sender: FDA-Public Use
  Company Number: US-PFIZER INC-2020369779

PATIENT
  Age: 61 Year
  Sex: Female

DRUGS (2)
  1. IBRANCE [Suspect]
     Active Substance: PALBOCICLIB
     Indication: Breast cancer female
     Dosage: 100 MG, CYCLIC [100 MG QD X 21 DAYS Q 28 DAYS ]
     Dates: start: 20200201
  2. IBRANCE [Suspect]
     Active Substance: PALBOCICLIB
     Indication: Oesophageal carcinoma
     Dosage: 100 MG
     Dates: start: 20200603

REACTIONS (3)
  - Peripheral nerve injury [Unknown]
  - Off label use [Unknown]
  - Product use issue [Unknown]
